FAERS Safety Report 8529882-9 (Version None)
Quarter: 2012Q3

REPORT INFORMATION
  Report Type: 
  Country: None (occurrence: None)
  Receive Date: 20120723
  Receipt Date: 20120712
  Transmission Date: 20120928
  Serious: Yes (Other)
  Sender: FDA-Public Use
  Company Number: US-JNJFOC-20120706917

PATIENT
  Sex: Female
  Weight: 68.95 kg

DRUGS (1)
  1. INVEGA SUSTENNA [Suspect]
     Indication: BIPOLAR DISORDER
     Route: 030
     Dates: start: 20120301, end: 20120501

REACTIONS (3)
  - GALACTORRHOEA [None]
  - WEIGHT INCREASED [None]
  - ACNE [None]
